FAERS Safety Report 18724272 (Version 1)
Quarter: 2021Q1

REPORT INFORMATION
  Report Type: Report from Study
  Country: GB (occurrence: GB)
  Receive Date: 20210111
  Receipt Date: 20210111
  Transmission Date: 20210419
  Serious: Yes (Other)
  Sender: FDA-Public Use
  Company Number: GB-PFIZER INC-2021002117

PATIENT

DRUGS (4)
  1. FLUCONAZOLE. [Suspect]
     Active Substance: FLUCONAZOLE
     Indication: CUSHING^S SYNDROME
     Dosage: UNK
  2. BUDESONIDE. [Interacting]
     Active Substance: BUDESONIDE
     Dosage: UNK, GRADUAL WEANING
     Route: 048
  3. CLARITHROMYCIN. [Interacting]
     Active Substance: CLARITHROMYCIN
     Indication: CUSHING^S SYNDROME
     Dosage: UNK
  4. BUDESONIDE. [Interacting]
     Active Substance: BUDESONIDE
     Indication: GRAFT VERSUS HOST DISEASE IN GASTROINTESTINAL TRACT
     Dosage: 3 MG, 3X/DAY
     Route: 048

REACTIONS (4)
  - Drug interaction [Recovered/Resolved]
  - Adrenal suppression [Recovered/Resolved]
  - Cushing^s syndrome [Recovered/Resolved]
  - Systemic toxicity [Recovered/Resolved]
